FAERS Safety Report 19546527 (Version 2)
Quarter: 2021Q3

REPORT INFORMATION
  Report Type: Spontaneous
  Country: JP (occurrence: JP)
  Receive Date: 20210715
  Receipt Date: 20210716
  Transmission Date: 20211014
  Serious: Yes (Life-Threatening, Other)
  Sender: FDA-Public Use
  Company Number: JP-SA-2021SA228805

PATIENT
  Age: 79 Year
  Sex: Female
  Weight: 64 kg

DRUGS (3)
  1. ARGATROBAN. [Concomitant]
     Active Substance: ARGATROBAN
     Indication: BASILAR ARTERY OCCLUSION
     Route: 041
  2. ACETYLSALICYLIC ACID [Concomitant]
     Active Substance: ASPIRIN
     Indication: BASILAR ARTERY OCCLUSION
     Route: 065
  3. CLOPIDOGREL BISULFATE. [Suspect]
     Active Substance: CLOPIDOGREL BISULFATE
     Indication: BASILAR ARTERY OCCLUSION
     Route: 065

REACTIONS (8)
  - Peripheral artery haematoma [Recovered/Resolved]
  - Pulmonary embolism [Recovered/Resolved]
  - Deep vein thrombosis [Recovered/Resolved]
  - Vascular pseudoaneurysm ruptured [Recovered/Resolved]
  - Vascular pseudoaneurysm [Recovered/Resolved]
  - Oedema peripheral [Recovered/Resolved]
  - Shock haemorrhagic [Recovered/Resolved]
  - Blood pressure decreased [Recovered/Resolved]
